FAERS Safety Report 8273099-2 (Version None)
Quarter: 2012Q2

REPORT INFORMATION
  Report Type: 
  Country: None (occurrence: None)
  Receive Date: 20120411
  Receipt Date: 20120405
  Transmission Date: 20120825
  Serious: Yes (Other)
  Sender: FDA-Public Use
  Company Number: US-PFIZER INC-2012071562

PATIENT
  Sex: Male

DRUGS (5)
  1. LYRICA [Suspect]
     Dosage: 150 MG, 1X/DAY
     Dates: start: 20100926, end: 20110317
  2. LYRICA [Suspect]
     Dosage: 300 MG, 1X/DAY
     Dates: start: 20120131, end: 20120313
  3. LYRICA [Suspect]
     Dosage: 225 MG, 1X/DAY
     Dates: start: 20110318, end: 20120130
  4. LYRICA [Suspect]
     Indication: BACK DISORDER
     Dosage: 75 MG, 1X/DAY
     Dates: start: 20100919, end: 20100925
  5. GABAPENTIN [Suspect]
     Indication: PARAESTHESIA
     Dosage: UNK
     Dates: end: 20100801

REACTIONS (8)
  - LIP SWELLING [None]
  - DYSPNOEA [None]
  - PARAESTHESIA [None]
  - LIP DISORDER [None]
  - LIP DRY [None]
  - AGITATION [None]
  - CHEILITIS [None]
  - IRRITABILITY [None]
